FAERS Safety Report 9252474 (Version 1)
Quarter: 2013Q1

REPORT INFORMATION
  Report Type: Spontaneous
  Country: US (occurrence: None)
  Receive Date: 20130305
  Receipt Date: 20130305
  Transmission Date: 20140127
  Serious: Yes (Disabling)
  Sender: FDA-Public Use
  Company Number: 163-21880-12091457 (0)

PATIENT
  Age: 75 Year
  Sex: Male
  Weight: 92.99 kg

DRUGS (7)
  1. REVLIMID [Suspect]
     Indication: PLASMA CELL MYELOMA
     Dosage: 25 MG, 21 IN 21 D
     Route: 048
     Dates: start: 20120523
  2. DEXAMETHASONE (DEXAMETHASONE) [Concomitant]
  3. FISH OIL (FISH OIL) [Concomitant]
  4. HYDROCHLOROTHIAZIDE (HYDROHLOROTHIAZIDE) [Concomitant]
  5. NASALCROM (CROMOGLICATE SODIUM) [Concomitant]
  6. POTASSIUM CHLORIDE (POTASSIUM CHLORIDE) [Concomitant]
  7. ZOMETA (ZOLEDRONIC ACID) [Concomitant]

REACTIONS (3)
  - Dysphagia [None]
  - Tremor [None]
  - Eye infection [None]
